FAERS Safety Report 11216764 (Version 2)
Quarter: 2015Q2

REPORT INFORMATION
  Report Type: Spontaneous
  Country: US (occurrence: US)
  Receive Date: 20150624
  Receipt Date: 20150629
  Transmission Date: 20150821
  Serious: Yes (Other)
  Sender: FDA-Public Use
  Company Number: US-PFIZER INC-2015206614

PATIENT
  Age: 48 Year
  Sex: Male
  Weight: 73 kg

DRUGS (1)
  1. CHANTIX [Suspect]
     Active Substance: VARENICLINE TARTRATE
     Indication: SMOKING CESSATION THERAPY
     Dosage: 0.5 MG, DAILY (FOR 3 DAYS)
     Route: 048
     Dates: start: 2015, end: 2015

REACTIONS (11)
  - Compulsions [Unknown]
  - Abnormal dreams [Recovering/Resolving]
  - Mood swings [Unknown]
  - Delusion [Unknown]
  - Judgement impaired [Unknown]
  - Insomnia [Unknown]
  - Irritability [Unknown]
  - Homicidal ideation [Unknown]
  - Depression [Unknown]
  - Agitation [Unknown]
  - Drug ineffective [Not Recovered/Not Resolved]

NARRATIVE: CASE EVENT DATE: 2015
